FAERS Safety Report 5675378-1 (Version None)
Quarter: 2008Q1

REPORT INFORMATION
  Report Type: 
  Country: None (occurrence: None)
  Receive Date: 20080320
  Receipt Date: 20080312
  Transmission Date: 20080703
  Serious: No
  Sender: FDA-Public Use
  Company Number: US-BOEHRINGER INGELHEIM GMBH, GERMANY-2008-BP-03041PF

PATIENT
  Sex: Female

DRUGS (7)
  1. SPIRIVA [Suspect]
     Indication: CHRONIC OBSTRUCTIVE PULMONARY DISEASE
  2. CHANTIX [Suspect]
     Indication: SMOKING CESSATION THERAPY
  3. METHADON HCL TAB [Concomitant]
  4. ALLEGRA D 24 HOUR [Concomitant]
  5. ALBUTEROL [Concomitant]
  6. IBUPROFEN [Concomitant]
  7. PREMARIN [Concomitant]

REACTIONS (1)
  - ANXIETY [None]
